FAERS Safety Report 7478615-6 (Version None)
Quarter: 2011Q2

REPORT INFORMATION
  Report Type: 
  Country: None (occurrence: None)
  Receive Date: 20110513
  Receipt Date: 20110505
  Transmission Date: 20111010
  Serious: Yes (Hospitalization, Other)
  Sender: FDA-Public Use
  Company Number: US-BRACCO-006217

PATIENT
  Sex: Male
  Weight: 121.81 kg

DRUGS (12)
  1. ACETAMINOPHEN [Concomitant]
     Dosage: 325 MG X 2 TABS QD
     Route: 048
  2. TAMSULOSIN HCL [Concomitant]
     Route: 048
  3. PROBENECID [Concomitant]
     Route: 048
  4. HYDROCODONE BITARTRATE [Concomitant]
     Dosage: DOSE: 5/500
     Route: 048
  5. GABAPENTIN [Concomitant]
     Route: 048
  6. SIMVASTATIN [Concomitant]
     Route: 048
  7. VERAPAMIL [Concomitant]
     Route: 048
  8. CENTRUM SILVER [Concomitant]
     Route: 048
  9. MULTIHANCE [Suspect]
     Indication: NUCLEAR MAGNETIC RESONANCE IMAGING
     Route: 042
     Dates: start: 20110503, end: 20110503
  10. MULTIHANCE [Suspect]
     Indication: SPINAL COMPRESSION FRACTURE
     Route: 042
     Dates: start: 20110503, end: 20110503
  11. MULTIHANCE [Suspect]
     Indication: MULTIPLE MYELOMA
     Route: 042
     Dates: start: 20110503, end: 20110503
  12. ATENOLOL [Concomitant]
     Route: 048

REACTIONS (2)
  - ANAPHYLACTIC REACTION [None]
  - LACTIC ACIDOSIS [None]
